FAERS Safety Report 12659665 (Version 1)
Quarter: 2016Q3

REPORT INFORMATION
  Report Type: Other
  Country: DK (occurrence: DK)
  Receive Date: 20160817
  Receipt Date: 20160817
  Transmission Date: 20161109
  Serious: Yes (Other)
  Sender: FDA-Public Use
  Company Number: DK-CELLTRION INC.-2016DK007861

PATIENT

DRUGS (2)
  1. REMSIMA [Suspect]
     Active Substance: INFLIXIMAB
     Indication: SPONDYLOARTHROPATHY
     Dosage: 400 MG,WEEKS 0, 2, 6, +6
     Route: 042
     Dates: start: 20150813, end: 20150813
  2. REMSIMA [Suspect]
     Active Substance: INFLIXIMAB
     Dosage: 400 MG,WEEKS 0, 2, 6, +6
     Route: 042
     Dates: start: 20160317, end: 20160317

REACTIONS (3)
  - White matter lesion [Not Recovered/Not Resolved]
  - Hemiparesis [Recovering/Resolving]
  - Sensory disturbance [Recovering/Resolving]

NARRATIVE: CASE EVENT DATE: 20160215
